FAERS Safety Report 20470325 (Version 1)
Quarter: 2022Q1

REPORT INFORMATION
  Report Type: Report from Study
  Country: CO (occurrence: CO)
  Receive Date: 20220214
  Receipt Date: 20220214
  Transmission Date: 20220423
  Serious: Yes (Hospitalization, Other)
  Sender: FDA-Public Use
  Company Number: CO-BRISTOL-MYERS SQUIBB COMPANY-BMS-2022-008505

PATIENT
  Age: 69 Year
  Sex: Male
  Weight: 76 kg

DRUGS (2)
  1. ABATACEPT [Suspect]
     Active Substance: ABATACEPT
     Indication: Rheumatoid arthritis
     Dosage: 750 MILLIGRAM, Q4WK
     Route: 042
     Dates: start: 20190925, end: 20220107
  2. ABATACEPT [Suspect]
     Active Substance: ABATACEPT
     Dosage: 750 MILLIGRAM, Q4WK
     Route: 042

REACTIONS (3)
  - Urinary tract infection [Recovering/Resolving]
  - Urinary retention [Unknown]
  - Haemorrhage [Unknown]

NARRATIVE: CASE EVENT DATE: 20211230
